FAERS Safety Report 9106631 (Version 1)
Quarter: 2013Q1

REPORT INFORMATION
  Report Type: Spontaneous
  Country: GB (occurrence: GB)
  Receive Date: 20130222
  Receipt Date: 20130222
  Transmission Date: 20140127
  Serious: Yes (Hospitalization, Other)
  Sender: FDA-Public Use
  Company Number: PHFR2007GB01055

PATIENT
  Age: 40 Year
  Sex: Male

DRUGS (2)
  1. CLOZARIL [Suspect]
     Indication: SCHIZOPHRENIA
     Dosage: 300 MG, QD
     Route: 048
     Dates: start: 20070206
  2. ZOPICLONE [Concomitant]
     Dosage: 7.5MG/DAY WHILE IN HOSPITAL
     Route: 048
     Dates: start: 20070205, end: 20070302

REACTIONS (4)
  - Interstitial lung disease [Recovered/Resolved]
  - Pyrexia [Recovered/Resolved]
  - Platelet count increased [Recovered/Resolved]
  - Eosinophil count increased [Unknown]
